FAERS Safety Report 5701801-X (Version None)
Quarter: 2008Q2

REPORT INFORMATION
  Report Type: 
  Country: None (occurrence: None)
  Receive Date: 20080410
  Receipt Date: 20080410
  Transmission Date: 20081010
  Serious: Yes (Other)
  Sender: FDA-Public Use
  Company Number: None

PATIENT
  Sex: Male
  Weight: 88.905 kg

DRUGS (2)
  1. AZMACORT [Suspect]
     Indication: ASTHMA
     Dosage: 1 PUFF TWICE DAILY ENHALED
     Route: 055
     Dates: start: 20080322
  2. AZMACORT [Suspect]
     Indication: BRONCHITIS
     Dosage: 1 PUFF TWICE DAILY ENHALED
     Route: 055
     Dates: start: 20080322

REACTIONS (3)
  - APHONIA [None]
  - BURNING SENSATION [None]
  - RESPIRATORY TRACT IRRITATION [None]
